FAERS Safety Report 23989170 (Version 1)
Quarter: 2024Q2

REPORT INFORMATION
  Report Type: Spontaneous
  Country: GB (occurrence: GB)
  Receive Date: 20240619
  Receipt Date: 20240619
  Transmission Date: 20240716
  Serious: Yes (Other)
  Sender: FDA-Public Use
  Company Number: GB-SUN PHARMACEUTICAL INDUSTRIES LTD-2024RR-452196

PATIENT
  Age: 54 Year
  Sex: Male
  Weight: 87 kg

DRUGS (18)
  1. LANSOPRAZOLE [Suspect]
     Active Substance: LANSOPRAZOLE
     Indication: Ill-defined disorder
     Dosage: 30 MILLIGRAM, DAILY AS PER LIVER TEAM
     Route: 065
     Dates: start: 20231228, end: 20240603
  2. INDEPENDENCE FUSION [Concomitant]
     Indication: Ill-defined disorder
     Dosage: AS DIRECTED
     Route: 065
     Dates: start: 20230726
  3. SENSURA MIO CONCAVE [Concomitant]
     Indication: Ill-defined disorder
     Dosage: AD DIRECTED
     Route: 065
     Dates: start: 20230726
  4. OTOMIZE [Concomitant]
     Indication: Ill-defined disorder
     Dosage: ONE SPRAY TO BE USED IN THE AFFECTED EAR(S) THR...
     Route: 065
     Dates: start: 20240319, end: 20240416
  5. CARBOHYDRATES\FATTY ACIDS\MINERALS\PROTEIN\VITAMINS [Concomitant]
     Active Substance: CARBOHYDRATES\FATTY ACIDS\MINERALS\PROTEIN\VITAMINS
     Indication: Ill-defined disorder
     Dosage: ONE FOUR TIMES A DAY
     Route: 065
     Dates: start: 20240530
  6. CODEINE [Concomitant]
     Active Substance: CODEINE
     Indication: Ill-defined disorder
     Dosage: TAKE ONE 4 TIMES/DAY
     Route: 065
     Dates: start: 20240603
  7. POLYETHYLENE GLYCOLS [Concomitant]
     Active Substance: POLYETHYLENE GLYCOLS
     Indication: Ill-defined disorder
     Dosage: USE AS DIRECTED
     Route: 065
     Dates: start: 20240603
  8. ENOXAPARIN [Concomitant]
     Active Substance: ENOXAPARIN
     Indication: Ill-defined disorder
     Dosage: 144MG DAILY AT 18:00 FOR PORTAL VEIN THROMBYS P...
     Route: 065
     Dates: start: 20240529
  9. OXYCODONE [Concomitant]
     Active Substance: OXYCODONE\OXYCODONE HYDROCHLORIDE
     Indication: Ill-defined disorder
     Dosage: 1-2 EVERY 4HOURS
     Route: 065
     Dates: start: 20240529
  10. MORPHINE [Concomitant]
     Active Substance: MORPHINE
     Indication: Ill-defined disorder
     Dosage: 5ML AS REQUIRED FOR BREAKTHROUGH PAIN
     Route: 065
     Dates: start: 20220817, end: 20240603
  11. FEXOFENADINE [Concomitant]
     Active Substance: FEXOFENADINE HYDROCHLORIDE
     Indication: Ill-defined disorder
     Dosage: TAKE ONE DAILY FOR ITCHY RASH
     Route: 065
     Dates: start: 20230119, end: 20240603
  12. PEEL [Concomitant]
     Indication: Ill-defined disorder
     Dosage: AS DIRECTED, APPLE
     Route: 065
     Dates: start: 20230726
  13. ELIQUIS [Concomitant]
     Active Substance: APIXABAN
     Indication: Ill-defined disorder
     Dosage: TAKE ONE TABLET TWICE A DAY (MORNING AND EVENIN...
     Route: 065
     Dates: start: 20231106, end: 20240603
  14. ENSURE PLUS FIBRE [Concomitant]
     Indication: Ill-defined disorder
     Dosage: ONE BOTTLE IN THE MORNING , BANANA
     Route: 065
     Dates: start: 20231203, end: 20240603
  15. SCOPOLAMINE [Concomitant]
     Active Substance: SCOPOLAMINE
     Indication: Ill-defined disorder
     Dosage: ONE TABLET EVERY 4-6 HOURS AS NEEDED
     Route: 065
     Dates: start: 20231203, end: 20240603
  16. ACETAMINOPHEN [Concomitant]
     Active Substance: ACETAMINOPHEN
     Indication: Ill-defined disorder
     Dosage: 2 TO BE TAKEN THREE TIMES DAILY - MAXIMUM 3 GRA...
     Route: 065
     Dates: start: 20240227
  17. FUROSEMIDE [Concomitant]
     Active Substance: FUROSEMIDE
     Indication: Ill-defined disorder
     Dosage: TAKE ONE EACH MORNING AT08:00 AND ONE TABLET AT...
     Route: 065
     Dates: start: 20240603
  18. SPIRONOLACTONE [Concomitant]
     Active Substance: SPIRONOLACTONE
     Indication: Ill-defined disorder
     Dosage: ONE TABLET DAILY AT 08:00
     Route: 065
     Dates: start: 20240603

REACTIONS (1)
  - Blood sodium decreased [Recovered/Resolved]

NARRATIVE: CASE EVENT DATE: 20240529
